FAERS Safety Report 8674192 (Version 2)
Quarter: 2012Q4

REPORT INFORMATION
  Report Type: 
  Country: GB (occurrence: GB)
  Receive Date: 20120719
  Receipt Date: 20120904
  Transmission Date: 20130627
  Serious: Yes (Other)
  Sender: FDA-Public Use
  Company Number: GB-JNJFOC-20120705499

PATIENT
  Age: 16 Year
  Sex: Male
  Weight: 89 kg

DRUGS (3)
  1. CONCERTA XL [Suspect]
     Indication: ATTENTION DEFICIT/HYPERACTIVITY DISORDER
     Route: 048
     Dates: start: 20100129
  2. CONCERTA XL [Suspect]
     Indication: ATTENTION DEFICIT/HYPERACTIVITY DISORDER
     Route: 048
     Dates: start: 2006
  3. CIRCADIN [Concomitant]
     Indication: INSOMNIA
     Route: 065
     Dates: start: 201101

REACTIONS (1)
  - Livedo reticularis [Not Recovered/Not Resolved]
